FAERS Safety Report 8592771-8 (Version None)
Quarter: 2012Q3

REPORT INFORMATION
  Report Type: 
  Country: None (occurrence: None)
  Receive Date: 20120814
  Receipt Date: 20120807
  Transmission Date: 20120928
  Serious: Yes (Other)
  Sender: FDA-Public Use
  Company Number: US-CELGENEUS-163-22393-12072328

PATIENT
  Sex: Male
  Weight: 57.113 kg

DRUGS (15)
  1. GLIPIZIDE [Concomitant]
     Indication: DIABETES MELLITUS
     Dosage: 5 MILLIGRAM
     Route: 048
     Dates: start: 20110920
  2. LORAZEPAM [Concomitant]
     Indication: NAUSEA
     Route: 048
  3. EMEND [Concomitant]
     Dosage: 150 MILLIGRAM
     Route: 065
  4. RELAFEN [Concomitant]
     Dosage: 750 MILLIGRAM
     Route: 048
  5. RITALIN [Concomitant]
     Indication: FATIGUE
     Dosage: 10 MILLIGRAM
     Route: 048
  6. INSULIN [Concomitant]
     Indication: DIABETES MELLITUS
     Dosage: 10 IU (INTERNATIONAL UNIT)
     Route: 065
     Dates: start: 20110920
  7. LORTAB [Concomitant]
     Indication: PAIN
     Dosage: 7.5/325MG
     Route: 048
  8. ISTODAX [Suspect]
     Indication: T-CELL LYMPHOMA REFRACTORY
     Dosage: 23 MILLIGRAM
     Route: 041
     Dates: start: 20120326
  9. COMPAZINE [Concomitant]
     Indication: NAUSEA
     Route: 065
  10. ALOXI [Concomitant]
     Dosage: .25 MILLIGRAM
     Route: 041
  11. CALCIUM WITH VITAMIN D [Concomitant]
     Route: 048
  12. PRILOSEC [Concomitant]
     Dosage: 20 MILLIGRAM
     Route: 048
  13. ZOLOFT [Concomitant]
     Indication: DEPRESSION
     Dosage: 100 MILLIGRAM
     Route: 048
     Dates: start: 20120321
  14. DECADRON PHOSPHATE [Concomitant]
     Route: 065
  15. ZOFRAN [Concomitant]
     Indication: NAUSEA
     Dosage: 8 MILLIGRAM
     Route: 048

REACTIONS (1)
  - INJECTION SITE EXTRAVASATION [None]
